FAERS Safety Report 7455740-7 (Version None)
Quarter: 2011Q2

REPORT INFORMATION
  Report Type: 
  Country: None (occurrence: None)
  Receive Date: 20110503
  Receipt Date: 20110429
  Transmission Date: 20111010
  Serious: Yes (Death)
  Sender: FDA-Public Use
  Company Number: US-ASTRAZENECA-2011SE24829

PATIENT
  Age: 45 Year
  Sex: Female

DRUGS (2)
  1. REMERON [Concomitant]
  2. SEROQUEL [Suspect]
     Route: 048

REACTIONS (3)
  - BRAIN DEATH [None]
  - GRAND MAL CONVULSION [None]
  - CARDIAC ARREST [None]
